FAERS Safety Report 9682757 (Version 4)
Quarter: 2015Q1

REPORT INFORMATION
  Report Type: Spontaneous
  Country: BR (occurrence: US)
  Receive Date: 20131112
  Receipt Date: 20150320
  Transmission Date: 20150721
  Serious: Yes (Hospitalization, Other)
  Sender: FDA-Public Use
  Company Number: US-MERCK-1311USA001668

PATIENT
  Sex: Female

DRUGS (3)
  1. FOSAMAX [Suspect]
     Active Substance: ALENDRONATE SODIUM
     Indication: OSTEOPOROSIS
     Dosage: 70 MG, QW
     Route: 048
     Dates: start: 200101, end: 200908
  2. CORTICOSTEROIDS (UNSPECIFIED) [Concomitant]
     Active Substance: UNSPECIFIED INGREDIENT
     Dosage: UNK
     Dates: start: 200006
  3. ALENDRONATE SODIUM. [Suspect]
     Active Substance: ALENDRONATE SODIUM
     Indication: OSTEOPOROSIS
     Dosage: 70 MG, QW
     Dates: start: 200908, end: 20120223

REACTIONS (15)
  - Surgery [Unknown]
  - Ileus [Unknown]
  - Treatment noncompliance [Unknown]
  - Gastrointestinal hypomotility [Unknown]
  - Knee operation [Unknown]
  - Femur fracture [Unknown]
  - Procedural pain [Unknown]
  - Atrial fibrillation [Unknown]
  - Arrhythmia [Unknown]
  - Arteriovenous fistula operation [Unknown]
  - Hypothyroidism [Unknown]
  - Intramedullary rod insertion [Unknown]
  - Hip arthroplasty [Unknown]
  - Femoral neck fracture [Unknown]
  - Chronic obstructive pulmonary disease [Unknown]

NARRATIVE: CASE EVENT DATE: 20010319
